FAERS Safety Report 13277325 (Version 1)
Quarter: 2017Q1

REPORT INFORMATION
  Report Type: Spontaneous
  Country: FR (occurrence: FR)
  Receive Date: 20170228
  Receipt Date: 20170228
  Transmission Date: 20170428
  Serious: Yes (Hospitalization, Other)
  Sender: FDA-Public Use
  Company Number: FR-PFIZER INC-2017080167

PATIENT
  Age: 20 Year
  Sex: Female

DRUGS (12)
  1. TRIFLUCAN [Suspect]
     Active Substance: FLUCONAZOLE
     Dosage: UNK
     Dates: start: 20170203
  2. NUREFLEX [Suspect]
     Active Substance: IBUPROFEN
     Route: 048
  3. FORTUM /00559701/ [Suspect]
     Active Substance: CEFTAZIDIME
     Dosage: UNK
     Dates: start: 20170131
  4. MUCOMYST [Concomitant]
     Active Substance: ACETYLCYSTEINE
  5. BECLOMETASONE DIPROPIONATE [Concomitant]
     Active Substance: BECLOMETHASONE DIPROPIONATE
  6. INNOVAIR [Concomitant]
     Active Substance: BECLOMETHASONE DIPROPIONATE\FORMOTEROL
  7. CREON [Concomitant]
     Active Substance: PANCRELIPASE AMYLASE\PANCRELIPASE LIPASE\PANCRELIPASE PROTEASE
  8. BACTRIM [Suspect]
     Active Substance: SULFAMETHOXAZOLE\TRIMETHOPRIM
     Dosage: UNK
     Dates: start: 201702, end: 201702
  9. NEBCINE [Suspect]
     Active Substance: TOBRAMYCIN
     Dosage: UNK
     Dates: start: 20170131
  10. INIPOMP [Concomitant]
     Active Substance: PANTOPRAZOLE SODIUM
  11. PULMOZYME [Concomitant]
     Active Substance: DORNASE ALFA
  12. ZITHROMAX [Suspect]
     Active Substance: AZITHROMYCIN DIHYDRATE
     Dosage: UNK
     Dates: start: 20170201

REACTIONS (2)
  - Condition aggravated [Recovering/Resolving]
  - Pancreatitis acute [Recovering/Resolving]

NARRATIVE: CASE EVENT DATE: 20170204
